FAERS Safety Report 6508691-6 (Version None)
Quarter: 2009Q4

REPORT INFORMATION
  Report Type: 
  Country: None (occurrence: None)
  Receive Date: 20091221
  Receipt Date: 20081230
  Transmission Date: 20100525
  Serious: No
  Sender: FDA-Public Use
  Company Number: US-ASTRAZENECA-2008UW28891

PATIENT
  Age: 47 Year
  Sex: Female
  Weight: 73 kg

DRUGS (2)
  1. CRESTOR [Suspect]
     Indication: BLOOD CHOLESTEROL INCREASED
     Dosage: 40 MG
     Route: 048
  2. LEVAQUIN [Concomitant]
     Indication: SINUSITIS
     Dates: start: 20081106, end: 20081207

REACTIONS (4)
  - CHROMATURIA [None]
  - FATIGUE [None]
  - MUSCLE FATIGUE [None]
  - MYALGIA [None]
